FAERS Safety Report 9285030 (Version 4)
Quarter: 2014Q1

REPORT INFORMATION
  Report Type: Spontaneous
  Country: FR (occurrence: FR)
  Receive Date: 20130513
  Receipt Date: 20140217
  Transmission Date: 20141002
  Serious: Yes (Death)
  Sender: FDA-Public Use
  Company Number: FR-JNJFOC-20130417194

PATIENT
  Age: 89 Year
  Sex: Male

DRUGS (7)
  1. ZYTIGA [Suspect]
     Indication: PROSTATE CANCER
     Dosage: 250 MG X 4
     Route: 048
     Dates: start: 20130322
  2. SOLUPRED [Suspect]
     Indication: PRODUCT USED FOR UNKNOWN INDICATION
     Route: 048
     Dates: start: 20130322
  3. DISCOTRINE [Concomitant]
     Indication: PRODUCT USED FOR UNKNOWN INDICATION
     Route: 062
  4. LASILIX [Concomitant]
     Indication: PRODUCT USED FOR UNKNOWN INDICATION
     Route: 048
  5. DIFFU K [Concomitant]
     Indication: PRODUCT USED FOR UNKNOWN INDICATION
     Route: 048
  6. RAMIPRIL [Concomitant]
     Indication: PRODUCT USED FOR UNKNOWN INDICATION
     Route: 048
  7. ALFUZOSINE [Concomitant]
     Indication: PRODUCT USED FOR UNKNOWN INDICATION
     Route: 048

REACTIONS (2)
  - Cardiopulmonary failure [Fatal]
  - Ischaemic stroke [Fatal]
